FAERS Safety Report 9501956 (Version 1)
Quarter: 2013Q3

REPORT INFORMATION
  Report Type: Spontaneous
  Country: GR (occurrence: GR)
  Receive Date: 20130905
  Receipt Date: 20130905
  Transmission Date: 20140515
  Serious: Yes (Hospitalization, Other)
  Sender: FDA-Public Use
  Company Number: GR-PFIZER INC-2013245114

PATIENT
  Age: 52 Year
  Sex: Female

DRUGS (3)
  1. RIFAMPICIN [Suspect]
     Indication: TUBERCULOSIS
     Dosage: UNK
  2. ISONIAZID [Concomitant]
     Indication: TUBERCULOSIS
     Dosage: UNK
  3. ETHAMBUTOL [Concomitant]
     Indication: TUBERCULOSIS
     Dosage: UNK

REACTIONS (1)
  - Fanconi syndrome [Unknown]
